FAERS Safety Report 12711486 (Version 2)
Quarter: 2016Q4

REPORT INFORMATION
  Report Type: Spontaneous
  Country: US (occurrence: US)
  Receive Date: 20160902
  Receipt Date: 20161004
  Transmission Date: 20170207
  Serious: No
  Sender: FDA-Public Use
  Company Number: US-PFIZER INC-2016409262

PATIENT
  Age: 66 Year
  Sex: Male

DRUGS (5)
  1. PROPECIA [Concomitant]
     Active Substance: FINASTERIDE
     Dosage: UNK
  2. GABAPENTIN. [Suspect]
     Active Substance: GABAPENTIN
     Indication: NERVE COMPRESSION
  3. CIALIS [Concomitant]
     Active Substance: TADALAFIL
     Indication: HYPERTONIC BLADDER
     Dosage: UNK
  4. GABAPENTIN. [Suspect]
     Active Substance: GABAPENTIN
     Indication: SCIATICA
     Dosage: UNK
  5. GABAPENTIN. [Suspect]
     Active Substance: GABAPENTIN
     Indication: INTERVERTEBRAL DISC PROTRUSION

REACTIONS (3)
  - Dizziness [Unknown]
  - Drug effect delayed [Unknown]
  - Product use issue [Unknown]
